FAERS Safety Report 18601607 (Version 1)
Quarter: 2020Q4

REPORT INFORMATION
  Report Type: Report from Study
  Country: CA (occurrence: CA)
  Receive Date: 20201210
  Receipt Date: 20201210
  Transmission Date: 20210114
  Serious: Yes (Other)
  Sender: FDA-Public Use
  Company Number: CA-TAKEDA-2020TUS037463

PATIENT
  Age: 66 Year
  Sex: Female

DRUGS (8)
  1. VEDOLIZUMAB [Suspect]
     Active Substance: VEDOLIZUMAB
     Indication: COLITIS ULCERATIVE
     Dosage: 300 MILLIGRAM
     Route: 042
     Dates: start: 20200608
  2. BUDESONIDE. [Concomitant]
     Active Substance: BUDESONIDE
     Dosage: UNK
  3. SALOFALK [AMINOSALICYLIC ACID] [Concomitant]
     Active Substance: AMINOSALICYLIC ACID
     Dosage: UNK UNK, QD
  4. VEDOLIZUMAB [Suspect]
     Active Substance: VEDOLIZUMAB
     Dosage: 300 MILLIGRAM, Q4WEEKS
     Route: 042
     Dates: start: 20200911
  5. VEDOLIZUMAB [Suspect]
     Active Substance: VEDOLIZUMAB
     Dosage: 300 MILLIGRAM, Q4WEEKS
     Route: 042
  6. PREDNISONE. [Concomitant]
     Active Substance: PREDNISONE
     Dosage: UNK
  7. CORTIMENT [HYDROCORTISONE] [Concomitant]
     Active Substance: HYDROCORTISONE
     Dosage: UNK
  8. MEZAVANT [Concomitant]
     Active Substance: MESALAMINE
     Dosage: 4.8 GRAM

REACTIONS (4)
  - Off label use [Unknown]
  - Drug ineffective [Unknown]
  - Colitis ulcerative [Not Recovered/Not Resolved]
  - Clostridium test positive [Unknown]

NARRATIVE: CASE EVENT DATE: 20200911
